FAERS Safety Report 23922491 (Version 1)
Quarter: 2024Q2

REPORT INFORMATION
  Report Type: Spontaneous
  Country: PL (occurrence: PL)
  Receive Date: 20240531
  Receipt Date: 20240531
  Transmission Date: 20240716
  Serious: Yes (Other)
  Sender: FDA-Public Use
  Company Number: PL-TEVA-VS-3202527

PATIENT
  Sex: Female

DRUGS (1)
  1. DOXEPIN [Suspect]
     Active Substance: DOXEPIN
     Indication: Product used for unknown indication
     Dosage: CURRENTLY AT 25GM, MAXIMUM DOSE 75MG
     Route: 065
     Dates: start: 2023

REACTIONS (2)
  - Hyperprolactinaemia [Unknown]
  - Weight increased [Unknown]
